FAERS Safety Report 7654188-X (Version None)
Quarter: 2011Q3

REPORT INFORMATION
  Report Type: 
  Country: None (occurrence: None)
  Receive Date: 20110803
  Receipt Date: 20110726
  Transmission Date: 20111222
  Serious: Yes (Other)
  Sender: FDA-Public Use
  Company Number: US-NOVOPROD-331703

PATIENT
  Sex: Male
  Weight: 136.5 kg

DRUGS (2)
  1. NOVOLIN 70/30 [Suspect]
     Indication: DIABETES MELLITUS
     Dosage: 100 U, TID
     Route: 058
     Dates: start: 20050101, end: 20110101
  2. NOVOLIN 70/30 [Suspect]
     Dosage: UNK
     Dates: start: 20110101

REACTIONS (6)
  - BLOOD GLUCOSE INCREASED [None]
  - FALL [None]
  - NAUSEA [None]
  - CONVULSION [None]
  - BALANCE DISORDER [None]
  - DIZZINESS [None]
